FAERS Safety Report 12190681 (Version 4)
Quarter: 2016Q3

REPORT INFORMATION
  Report Type: Spontaneous
  Country: US (occurrence: US)
  Receive Date: 20160318
  Receipt Date: 20160803
  Transmission Date: 20161109
  Serious: Yes (Other)
  Sender: FDA-Public Use
  Company Number: US-GLAXOSMITHKLINE-US2016035109

PATIENT
  Age: 91 Year
  Sex: Female

DRUGS (10)
  1. LASIX [Concomitant]
     Active Substance: FUROSEMIDE
  2. PARICALCITOL. [Concomitant]
     Active Substance: PARICALCITOL
  3. COUMADIN [Concomitant]
     Active Substance: WARFARIN SODIUM
  4. FUROSEMIDE. [Concomitant]
     Active Substance: FUROSEMIDE
  5. ANORO ELLIPTA [Suspect]
     Active Substance: UMECLIDINIUM BROMIDE\VILANTEROL TRIFENATATE
     Dosage: 1 PUFF(S), UNK
     Route: 055
  6. ANORO ELLIPTA [Suspect]
     Active Substance: UMECLIDINIUM BROMIDE\VILANTEROL TRIFENATATE
     Dosage: 1 PUFF(S), 1D
     Route: 055
     Dates: start: 201602
  7. FAMOTIDINE. [Concomitant]
     Active Substance: FAMOTIDINE
  8. ANORO ELLIPTA [Suspect]
     Active Substance: UMECLIDINIUM BROMIDE\VILANTEROL TRIFENATATE
     Indication: CARDIAC FAILURE CONGESTIVE
     Dosage: 1 PUFF(S), UNK
     Route: 055
     Dates: start: 201509
  9. BIOTIN [Concomitant]
     Active Substance: BIOTIN
  10. CRESTOR [Concomitant]
     Active Substance: ROSUVASTATIN CALCIUM

REACTIONS (11)
  - Dyspnoea [Recovered/Resolved]
  - Choking sensation [Not Recovered/Not Resolved]
  - Extra dose administered [Recovered/Resolved]
  - Product quality issue [Unknown]
  - Drug effect incomplete [Not Recovered/Not Resolved]
  - Choking [Not Recovered/Not Resolved]
  - Device use error [Unknown]
  - Pruritus [Not Recovered/Not Resolved]
  - Drug ineffective [Not Recovered/Not Resolved]
  - Cough [Not Recovered/Not Resolved]
  - Off label use [Not Recovered/Not Resolved]

NARRATIVE: CASE EVENT DATE: 20160303
